FAERS Safety Report 15729683 (Version 1)
Quarter: 2018Q4

REPORT INFORMATION
  Report Type: Spontaneous
  Country: JP (occurrence: JP)
  Receive Date: 20181217
  Receipt Date: 20181217
  Transmission Date: 20190205
  Serious: Yes (Hospitalization, Other)
  Sender: FDA-Public Use
  Company Number: JP-SA-2018SA338496

PATIENT
  Age: 3 Decade
  Sex: Male

DRUGS (1)
  1. DUPIXENT [Suspect]
     Active Substance: DUPILUMAB
     Indication: DERMATITIS ATOPIC
     Dosage: 300 MG PER DOSE
     Route: 058
     Dates: start: 201806, end: 201812

REACTIONS (2)
  - Condition aggravated [Recovering/Resolving]
  - Mitral valve stenosis [Recovering/Resolving]

NARRATIVE: CASE EVENT DATE: 201812
